FAERS Safety Report 5820268-4 (Version None)
Quarter: 2008Q3

REPORT INFORMATION
  Report Type: 
  Country: None (occurrence: None)
  Receive Date: 20080724
  Receipt Date: 20070904
  Transmission Date: 20090109
  Serious: No
  Sender: FDA-Public Use
  Company Number: A0645968A

PATIENT
  Age: 64 Year
  Sex: Male

DRUGS (7)
  1. AVANDIA [Suspect]
     Dosage: 5MG PER DAY
     Route: 048
     Dates: start: 20070301, end: 20070301
  2. ASPIRIN [Concomitant]
  3. CARDIZEM [Concomitant]
  4. DILANTIN [Concomitant]
  5. LOTENSIN [Concomitant]
  6. CRESTOR [Concomitant]
  7. NITROGLYCERIN [Concomitant]

REACTIONS (12)
  - ASTHENIA [None]
  - CHROMATURIA [None]
  - DRUG HYPERSENSITIVITY [None]
  - FATIGUE [None]
  - HYPERGLYCAEMIA [None]
  - INSOMNIA [None]
  - MUSCLE SPASMS [None]
  - OEDEMA PERIPHERAL [None]
  - POLLAKIURIA [None]
  - PRURITUS [None]
  - RASH [None]
  - VISION BLURRED [None]
